FAERS Safety Report 17521645 (Version 3)
Quarter: 2020Q2

REPORT INFORMATION
  Report Type: Report from Study
  Country: CA (occurrence: CA)
  Receive Date: 20200310
  Receipt Date: 20200409
  Transmission Date: 20200713
  Serious: Yes (Other)
  Sender: FDA-Public Use
  Company Number: CA-JNJFOC-20200240836

PATIENT
  Age: 41 Year
  Sex: Female

DRUGS (2)
  1. STELARA [Suspect]
     Active Substance: USTEKINUMAB
     Indication: CROHN^S DISEASE
     Route: 058
     Dates: start: 20180615
  2. STELARA [Suspect]
     Active Substance: USTEKINUMAB

REACTIONS (15)
  - Crohn^s disease [Not Recovered/Not Resolved]
  - Abscess [Not Recovered/Not Resolved]
  - Anaemia [Not Recovered/Not Resolved]
  - Vision blurred [Not Recovered/Not Resolved]
  - Skin discolouration [Not Recovered/Not Resolved]
  - Renal disorder [Not Recovered/Not Resolved]
  - Arthritis [Not Recovered/Not Resolved]
  - Eye discharge [Not Recovered/Not Resolved]
  - Impaired self-care [Not Recovered/Not Resolved]
  - Musculoskeletal stiffness [Not Recovered/Not Resolved]
  - Concussion [Not Recovered/Not Resolved]
  - Asthma [Not Recovered/Not Resolved]
  - Blood glucose increased [Not Recovered/Not Resolved]
  - Kidney infection [Not Recovered/Not Resolved]
  - Hypoaesthesia [Not Recovered/Not Resolved]

NARRATIVE: CASE EVENT DATE: 2019
